FAERS Safety Report 9230483 (Version 3)
Quarter: 2015Q2

REPORT INFORMATION
  Report Type: Report from Study
  Country: JP (occurrence: JP)
  Receive Date: 20130415
  Receipt Date: 20150516
  Transmission Date: 20150821
  Serious: Yes (Other)
  Sender: FDA-Public Use
  Company Number: PHHY2012JP120319

PATIENT
  Age: 42 Year
  Sex: Male

DRUGS (71)
  1. CLOZARIL [Suspect]
     Active Substance: CLOZAPINE
     Dosage: 75 MG
     Route: 048
     Dates: start: 20120515, end: 20120516
  2. CLOZARIL [Suspect]
     Active Substance: CLOZAPINE
     Dosage: 150 MG
     Route: 048
     Dates: start: 20120522, end: 20120524
  3. CLOZARIL [Suspect]
     Active Substance: CLOZAPINE
     Dosage: 75 MG
     Route: 048
     Dates: start: 20130103, end: 20130104
  4. CLOZARIL [Suspect]
     Active Substance: CLOZAPINE
     Dosage: 350 MG
     Route: 048
     Dates: start: 20130220, end: 20130305
  5. CLOZARIL [Suspect]
     Active Substance: CLOZAPINE
     Dosage: UNK
     Route: 048
  6. HALOPERIDOL. [Concomitant]
     Active Substance: HALOPERIDOL
     Indication: SCHIZOPHRENIA, PARANOID TYPE
     Dosage: 35 MG
     Route: 048
     Dates: start: 20120508, end: 20120514
  7. HALOPERIDOL. [Concomitant]
     Active Substance: HALOPERIDOL
     Dosage: 25 MG
     Route: 048
     Dates: start: 20120522, end: 20120525
  8. LITHIUM CARBONATE. [Concomitant]
     Active Substance: LITHIUM CARBONATE
     Indication: SCHIZOPHRENIA, PARANOID TYPE
     Dosage: 400 MG
     Route: 048
     Dates: start: 20121013, end: 20121016
  9. CLOZARIL [Suspect]
     Active Substance: CLOZAPINE
     Indication: SCHIZOPHRENIA
     Dosage: 25 MG
     Route: 048
     Dates: start: 20120509, end: 20120511
  10. CLOZARIL [Suspect]
     Active Substance: CLOZAPINE
     Dosage: 375 MG
     Route: 048
     Dates: start: 20120908, end: 20120925
  11. CLOZARIL [Suspect]
     Active Substance: CLOZAPINE
     Dosage: 450 MG
     Route: 048
     Dates: start: 20121207, end: 20121224
  12. LEVOMEPROMAZINE MALEATE [Concomitant]
     Active Substance: LEVOMEPROMAZINE MALEATE
     Dosage: 140 MG
     Route: 048
     Dates: start: 20120529, end: 20120601
  13. BROMAZEPAM [Concomitant]
     Active Substance: BROMAZEPAM
     Dosage: 10 MG
     Route: 048
     Dates: start: 20120814, end: 20120820
  14. FLUNITRAZEPAM [Concomitant]
     Active Substance: FLUNITRAZEPAM
     Indication: SCHIZOPHRENIA, PARANOID TYPE
     Dosage: 2 MG
     Route: 048
     Dates: start: 20120602
  15. PHENOTHIAZINE DERIVATIVES [Concomitant]
     Dosage: 37.5 MG
     Route: 065
     Dates: start: 20120519, end: 20120601
  16. CLOZARIL [Suspect]
     Active Substance: CLOZAPINE
     Indication: SCHIZOPHRENIA, PARANOID TYPE
     Dosage: 12.5 MG, QD (DAILY)
     Route: 048
     Dates: start: 20120508, end: 20120508
  17. CLOZARIL [Suspect]
     Active Substance: CLOZAPINE
     Dosage: 125 MG
     Route: 048
     Dates: start: 20120519, end: 20120521
  18. CLOZARIL [Suspect]
     Active Substance: CLOZAPINE
     Dosage: 50 MG
     Route: 048
     Dates: start: 20121231, end: 20130102
  19. CLOZARIL [Suspect]
     Active Substance: CLOZAPINE
     Dosage: 125 MG
     Route: 048
     Dates: start: 20130107, end: 20130109
  20. CLOZARIL [Suspect]
     Active Substance: CLOZAPINE
     Dosage: 200 MG
     Route: 048
     Dates: start: 20130116, end: 20130122
  21. CLOZARIL [Suspect]
     Active Substance: CLOZAPINE
     Dosage: 400 MG
     Route: 048
     Dates: start: 20130306, end: 20130416
  22. HALOPERIDOL. [Concomitant]
     Active Substance: HALOPERIDOL
     Dosage: 20 MG
     Route: 048
     Dates: start: 20120526, end: 20120528
  23. HALOPERIDOL. [Concomitant]
     Active Substance: HALOPERIDOL
     Dosage: 10 MG
     Route: 048
     Dates: start: 20120529, end: 20120601
  24. LEVOMEPROMAZINE MALEATE [Concomitant]
     Active Substance: LEVOMEPROMAZINE MALEATE
     Indication: SCHIZOPHRENIA, PARANOID TYPE
     Dosage: 350 MG
     Route: 048
     Dates: start: 20120508, end: 20120514
  25. BLONANSERIN [Concomitant]
     Active Substance: BLONANSERIN
     Dosage: 24 MG
     Route: 048
     Dates: start: 20120515, end: 20120604
  26. BROMAZEPAM [Concomitant]
     Active Substance: BROMAZEPAM
     Dosage: 5 MG
     Route: 048
     Dates: start: 20120821, end: 20120827
  27. CARBAMAZEPINE. [Concomitant]
     Active Substance: CARBAMAZEPINE
     Dosage: 800 MG
     Route: 048
     Dates: start: 20120904, end: 20121105
  28. TRAZODONE HYDROCHLORIDE. [Concomitant]
     Active Substance: TRAZODONE HYDROCHLORIDE
     Indication: SCHIZOPHRENIA, PARANOID TYPE
     Dosage: 25 MG
     Route: 048
     Dates: start: 20120508
  29. LITHIUM CARBONATE. [Concomitant]
     Active Substance: LITHIUM CARBONATE
     Dosage: 800 MG
     Route: 048
     Dates: start: 20121017, end: 20121025
  30. LITHIUM CARBONATE. [Concomitant]
     Active Substance: LITHIUM CARBONATE
     Dosage: 1200 MG
     Route: 048
     Dates: start: 20121107, end: 20121224
  31. LITHIUM CARBONATE. [Concomitant]
     Active Substance: LITHIUM CARBONATE
     Dosage: 600 MG
     Route: 048
     Dates: start: 20121225, end: 20130114
  32. CLOZARIL [Suspect]
     Active Substance: CLOZAPINE
     Dosage: 175 MG
     Route: 048
     Dates: start: 20120525, end: 20120527
  33. CLOZARIL [Suspect]
     Active Substance: CLOZAPINE
     Dosage: 200 MG
     Route: 048
     Dates: start: 20120528, end: 20120531
  34. CLOZARIL [Suspect]
     Active Substance: CLOZAPINE
     Dosage: 400 MG
     Route: 048
     Dates: start: 20120926, end: 20121206
  35. CLOZARIL [Suspect]
     Active Substance: CLOZAPINE
     Dosage: 25 MG
     Route: 048
     Dates: start: 20121228, end: 20121230
  36. CLOZARIL [Suspect]
     Active Substance: CLOZAPINE
     Dosage: 100 MG
     Route: 048
     Dates: start: 20130105, end: 20130106
  37. LEVOMEPROMAZINE MALEATE [Concomitant]
     Active Substance: LEVOMEPROMAZINE MALEATE
     Dosage: 310 MG
     Route: 048
     Dates: start: 20120515, end: 20120518
  38. LEVOMEPROMAZINE MALEATE [Concomitant]
     Active Substance: LEVOMEPROMAZINE MALEATE
     Dosage: 270 MG
     Route: 048
     Dates: start: 20120519, end: 20120525
  39. CARBAMAZEPINE. [Concomitant]
     Active Substance: CARBAMAZEPINE
     Indication: SCHIZOPHRENIA, PARANOID TYPE
     Dosage: 500 MG
     Route: 048
     Dates: start: 20120508, end: 20120903
  40. PHENOBARBITAL. [Concomitant]
     Active Substance: PHENOBARBITAL
     Dosage: 90 MG
     Route: 048
     Dates: start: 20120519, end: 20120604
  41. CLOZARIL [Suspect]
     Active Substance: CLOZAPINE
     Dosage: 325 MG
     Route: 048
     Dates: start: 20120711, end: 20120814
  42. CLOZARIL [Suspect]
     Active Substance: CLOZAPINE
     Dosage: 150 MG
     Route: 048
     Dates: start: 20130110, end: 20130112
  43. CLOZARIL [Suspect]
     Active Substance: CLOZAPINE
     Dosage: 175 MG
     Route: 048
     Dates: start: 20130113, end: 20130115
  44. CLOZARIL [Suspect]
     Active Substance: CLOZAPINE
     Dosage: 250 MG
     Route: 048
     Dates: start: 20130123, end: 20130205
  45. BLONANSERIN [Concomitant]
     Active Substance: BLONANSERIN
     Indication: SCHIZOPHRENIA, PARANOID TYPE
     Dosage: 32 MG
     Route: 048
     Dates: start: 20120508, end: 20120514
  46. PHENOBARBITAL. [Concomitant]
     Active Substance: PHENOBARBITAL
     Dosage: 120 MG
     Route: 048
     Dates: start: 20120605
  47. PHENOTHIAZINE DERIVATIVES [Concomitant]
     Indication: SCHIZOPHRENIA, PARANOID TYPE
     Dosage: 50 MG
     Route: 065
     Dates: start: 20120508, end: 20120518
  48. CLOZARIL [Suspect]
     Active Substance: CLOZAPINE
     Dosage: 300 MG
     Route: 048
     Dates: start: 20130206, end: 20130219
  49. SERENACE [Suspect]
     Active Substance: HALOPERIDOL
     Indication: SCHIZOPHRENIA, PARANOID TYPE
     Dosage: UNK
     Route: 065
  50. LEVOMEPROMAZINE MALEATE [Concomitant]
     Active Substance: LEVOMEPROMAZINE MALEATE
     Dosage: 230 MG
     Route: 048
     Dates: start: 20120526, end: 20120528
  51. LEVOMEPROMAZINE MALEATE [Concomitant]
     Active Substance: LEVOMEPROMAZINE MALEATE
     Dosage: 70 MG
     Route: 048
     Dates: start: 20120602, end: 20120604
  52. CHLORPROMAZINE HYDROCHLORIDE. [Concomitant]
     Active Substance: CHLORPROMAZINE HYDROCHLORIDE
     Dosage: 37.5 MG
     Route: 048
     Dates: start: 20120519, end: 20120601
  53. BROMAZEPAM [Concomitant]
     Active Substance: BROMAZEPAM
     Indication: SCHIZOPHRENIA, PARANOID TYPE
     Dosage: 20 MG
     Route: 048
     Dates: start: 20120508, end: 20120813
  54. CARBAMAZEPINE. [Concomitant]
     Active Substance: CARBAMAZEPINE
     Dosage: 400 MG
     Route: 048
     Dates: start: 20121106, end: 20121112
  55. NIZATIDINE. [Concomitant]
     Active Substance: NIZATIDINE
     Indication: CONSTIPATION
     Dosage: 300 MG
     Route: 048
     Dates: start: 20120508
  56. LITHIUM CARBONATE. [Concomitant]
     Active Substance: LITHIUM CARBONATE
     Dosage: 1000 MG
     Route: 048
     Dates: start: 20121026, end: 20121106
  57. PHENOTHIAZINE DERIVATIVES [Concomitant]
     Dosage: 25 MG
     Route: 065
     Dates: start: 20120724, end: 20120730
  58. CLOZARIL [Suspect]
     Active Substance: CLOZAPINE
     Dosage: 250 MG
     Route: 048
     Dates: start: 20120601, end: 20120605
  59. CLOZARIL [Suspect]
     Active Substance: CLOZAPINE
     Dosage: 450 MG
     Route: 048
     Dates: start: 20130417
  60. HALOPERIDOL. [Concomitant]
     Active Substance: HALOPERIDOL
     Dosage: 30 MG
     Route: 048
     Dates: start: 20120515, end: 20120521
  61. SENNOSIDE [Concomitant]
     Active Substance: SENNOSIDES
     Indication: CONSTIPATION
     Dosage: 24 MG
     Route: 048
     Dates: start: 20120508
  62. MAGNESIUM SALT [Concomitant]
     Indication: CONSTIPATION
     Dosage: 1000 MG
     Route: 048
     Dates: start: 20120508
  63. PHENOBARBITAL. [Concomitant]
     Active Substance: PHENOBARBITAL
     Indication: SCHIZOPHRENIA, PARANOID TYPE
     Dosage: 120 MG
     Route: 048
     Dates: start: 20120508, end: 20120518
  64. CLOZARIL [Suspect]
     Active Substance: CLOZAPINE
     Dosage: 50 MG
     Route: 048
     Dates: start: 20120512, end: 20120514
  65. CLOZARIL [Suspect]
     Active Substance: CLOZAPINE
     Dosage: 100 MG
     Route: 048
     Dates: start: 20120517, end: 20120518
  66. CLOZARIL [Suspect]
     Active Substance: CLOZAPINE
     Dosage: 300 MG
     Route: 048
     Dates: start: 20120606, end: 20120710
  67. CLOZARIL [Suspect]
     Active Substance: CLOZAPINE
     Dosage: 350 MG
     Route: 048
     Dates: start: 20120815, end: 20120907
  68. CLOZARIL [Suspect]
     Active Substance: CLOZAPINE
     Dosage: 12.5 MG
     Route: 048
     Dates: start: 20121227, end: 20121227
  69. CHLORPROMAZINE HYDROCHLORIDE. [Concomitant]
     Active Substance: CHLORPROMAZINE HYDROCHLORIDE
     Indication: SCHIZOPHRENIA, PARANOID TYPE
     Dosage: 50 MG
     Route: 048
     Dates: start: 20120508, end: 20120518
  70. SODIUM VALPROATE [Concomitant]
     Active Substance: VALPROATE SODIUM
     Indication: SCHIZOPHRENIA, PARANOID TYPE
     Dosage: 800 MG
     Route: 048
     Dates: start: 20121217
  71. PHENOTHIAZINE DERIVATIVES [Concomitant]
     Dosage: 50 MG
     Route: 065
     Dates: start: 20120602, end: 20120723

REACTIONS (3)
  - General physical health deterioration [Unknown]
  - Nasopharyngitis [Unknown]
  - Extrapyramidal disorder [Not Recovered/Not Resolved]

NARRATIVE: CASE EVENT DATE: 20120508
